FAERS Safety Report 4715069-4 (Version None)
Quarter: 2005Q3

REPORT INFORMATION
  Report Type: 
  Country: None (occurrence: None)
  Receive Date: 20050715
  Receipt Date: 20000804
  Transmission Date: 20060218
  Serious: Yes (Hospitalization)
  Sender: FDA-Public Use
  Company Number: FR-SOLVAY-00200006029

PATIENT
  Age: 24930 Day
  Sex: Male
  Weight: 84 kg

DRUGS (9)
  1. MOXONIDINE [Concomitant]
     Indication: ILL-DEFINED DISORDER
     Dosage: DAILY DOSE: UNK. FREQUENCY:UNKNOWN
     Route: 048
     Dates: start: 20000303
  2. PERINDOPRIL [Suspect]
     Indication: HYPERTENSION
     Dosage: DAILY DOSE: 8 MILLIGRAM(S)
     Route: 048
     Dates: start: 19991022, end: 20000505
  3. GLICLAZIDE [Concomitant]
     Indication: ILL-DEFINED DISORDER
     Dosage: DAILY DOSE: UNK. FREQUENCY:UNKNOWN
     Route: 065
     Dates: start: 19910101
  4. AMLODIPINE [Suspect]
     Indication: HYPERTENSION
     Dosage: DAILY DOSE: 10 MILLIGRAM(S)
     Route: 048
     Dates: start: 19991022, end: 20000303
  5. ALLOPURINOL [Concomitant]
     Indication: ILL-DEFINED DISORDER
     Dosage: DAILY DOSE: UNK. FREQUENCY:UNKNOWN
     Route: 065
     Dates: start: 19950101
  6. DOXAZOSIN MESYLATE [Suspect]
     Indication: HYPERTENSION
     Dosage: DAILY DOSE: 8 MILLIGRAM(S)
     Route: 048
     Dates: start: 19991203, end: 20000505
  7. METFORMIN HCL [Concomitant]
     Indication: ILL-DEFINED DISORDER
     Dosage: DAILY DOSE: UNK. FREQUENCY:UNKNOWN
     Route: 065
     Dates: start: 19910101
  8. PLACEBO [Suspect]
     Indication: HYPERLIPIDAEMIA
     Dosage: DAILY DOSE:  UNKNOWN
     Route: 065
     Dates: start: 19991022, end: 20000505
  9. DOXAZOSIN [Concomitant]
     Indication: ILL-DEFINED DISORDER
     Dosage: DAILY DOSE: UNK. FREQUENCY:UNKNOWN
     Route: 065
     Dates: start: 20000321

REACTIONS (2)
  - RENAL ARTERY STENOSIS [None]
  - RENAL FAILURE ACUTE [None]
